FAERS Safety Report 13907065 (Version 1)
Quarter: 2017Q3

REPORT INFORMATION
  Report Type: Report from Study
  Country: US (occurrence: US)
  Receive Date: 20170825
  Receipt Date: 20170825
  Transmission Date: 20171127
  Serious: Yes (Other)
  Sender: FDA-Public Use
  Company Number: PHHY2017US123336

PATIENT
  Age: 59 Year
  Sex: Male

DRUGS (12)
  1. SOMA [Concomitant]
     Active Substance: CARISOPRODOL
     Indication: CHEST PAIN
     Dosage: 350 MG, QD
     Route: 048
     Dates: start: 20130905
  2. VITAMIN D [Concomitant]
     Active Substance: CHOLECALCIFEROL
     Dosage: 2000 OT, QD
     Route: 048
     Dates: start: 20130917
  3. VITAMIN D [Concomitant]
     Active Substance: CHOLECALCIFEROL
     Indication: VITAMIN D DECREASED
     Dosage: 50000 OT, QW
     Route: 048
     Dates: start: 20130917
  4. BACLOFEN. [Concomitant]
     Active Substance: BACLOFEN
     Indication: MUSCLE SPASTICITY
     Dosage: 10 MG, TID
     Route: 048
     Dates: start: 20070101
  5. LEXAPRO [Concomitant]
     Active Substance: ESCITALOPRAM OXALATE
     Indication: DEPRESSION
     Dosage: 20 MG, QD
     Route: 048
     Dates: start: 20150902
  6. AMPYRA [Concomitant]
     Active Substance: DALFAMPRIDINE
     Indication: MOVEMENT DISORDER
     Dosage: 10 MG, BID
     Route: 048
     Dates: start: 20110914
  7. IBUPROFEN. [Concomitant]
     Active Substance: IBUPROFEN
     Indication: BURSITIS
     Dosage: 600 G, TID (PRN)
     Route: 065
     Dates: start: 20150602
  8. VITAMIN B12 [Concomitant]
     Active Substance: CYANOCOBALAMIN
     Indication: VITAMIN B12 DEFICIENCY
     Dosage: 1000 MG, QD
     Route: 048
     Dates: start: 20130227
  9. PROVIGIL [Concomitant]
     Active Substance: MODAFINIL
     Indication: FATIGUE
     Dosage: 200 MG, QD
     Route: 048
     Dates: start: 20130917
  10. GILENYA [Suspect]
     Active Substance: FINGOLIMOD HYDROCHLORIDE
     Indication: MULTIPLE SCLEROSIS
     Dosage: UNK UNK, QD
     Route: 048
  11. NEURONTIN [Concomitant]
     Active Substance: GABAPENTIN
     Indication: CHEST PAIN
     Dosage: 300 MG, TID
     Route: 048
     Dates: start: 20120727
  12. INDOCIN [Concomitant]
     Active Substance: INDOMETHACIN
     Indication: SENSORY DISTURBANCE
     Dosage: 25 MG, PRN
     Route: 048
     Dates: start: 20121206

REACTIONS (3)
  - Vision blurred [Recovered/Resolved]
  - Visual impairment [Unknown]
  - Glaucoma [Unknown]

NARRATIVE: CASE EVENT DATE: 20160112
